FAERS Safety Report 10170765 (Version 1)
Quarter: 2014Q2

REPORT INFORMATION
  Report Type: Spontaneous
  Country: BE (occurrence: BE)
  Receive Date: 20140514
  Receipt Date: 20140514
  Transmission Date: 20141212
  Serious: Yes (Hospitalization)
  Sender: FDA-Public Use
  Company Number: BE-JNJFOC-20140501651

PATIENT
  Age: 69 Year
  Sex: Female
  Weight: 56 kg

DRUGS (8)
  1. DOXORUBICIN [Suspect]
     Indication: OVARIAN CANCER
     Route: 042
     Dates: start: 20140303
  2. EC145 [Suspect]
     Indication: OVARIAN CANCER
     Dosage: DAY 1, 3, 5, 15, 17 AND 19)
     Route: 042
     Dates: start: 20140303
  3. PLACEBO [Suspect]
     Indication: OVARIAN CANCER
     Dosage: DAY 1, 3, 5, 15, 17 AND 19
     Route: 042
     Dates: start: 20140303
  4. EC20 [Suspect]
     Indication: SINGLE PHOTON EMISSION COMPUTERISED TOMOGRAM
     Route: 042
     Dates: start: 20140218, end: 20140218
  5. FOLIC ACID [Suspect]
     Indication: SINGLE PHOTON EMISSION COMPUTERISED TOMOGRAM
     Route: 042
     Dates: start: 20140218, end: 20140218
  6. COVERSYL [Concomitant]
     Indication: HYPERTENSION
     Route: 048
  7. CRESTOR [Concomitant]
     Indication: HYPERCHOLESTEROLAEMIA
     Route: 048
  8. ASAFLOW [Concomitant]
     Indication: PROPHYLAXIS
     Route: 048

REACTIONS (2)
  - Erysipelas [Recovered/Resolved]
  - Dysphagia [Not Recovered/Not Resolved]
